FAERS Safety Report 26158388 (Version 1)
Quarter: 2025Q4

REPORT INFORMATION
  Report Type: Spontaneous
  Country: US (occurrence: US)
  Receive Date: 20251215
  Receipt Date: 20251215
  Transmission Date: 20260117
  Serious: No
  Sender: Harrow Health
  Company Number: US-HARROW-HAR-2025-US-01403

PATIENT
  Age: 36 Year
  Sex: Male

DRUGS (1)
  1. VEVYE [Suspect]
     Active Substance: CYCLOSPORINE
     Dates: start: 20251020

REACTIONS (2)
  - Instillation site foreign body sensation [Unknown]
  - Eyelid rash [Unknown]

NARRATIVE: CASE EVENT DATE: 20251022
